FAERS Safety Report 4398903-X (Version None)
Quarter: 2004Q3

REPORT INFORMATION
  Report Type: 
  Country: None (occurrence: None)
  Receive Date: 20040712
  Receipt Date: 20040622
  Transmission Date: 20050211
  Serious: Yes (Life-Threatening, Other)
  Sender: FDA-Public Use
  Company Number: JP_040603514

PATIENT
  Age: 61 Year
  Sex: Male
  Weight: 56 kg

DRUGS (4)
  1. GEMZAR [Suspect]
     Indication: PANCREATIC CARCINOMA
     Dosage: 1000 MG/M2 OTHER
     Dates: start: 20031117, end: 20031125
  2. MORPHINE HYDROCHLORIDE [Concomitant]
  3. HUMULIN R [Concomitant]
  4. ROHYPNOL(FLUNITRAZEPAM) [Concomitant]

REACTIONS (10)
  - ABDOMINAL DISTENSION [None]
  - ASCITES [None]
  - BLOOD BILIRUBIN INCREASED [None]
  - INTESTINAL OBSTRUCTION [None]
  - JAUNDICE CHOLESTATIC [None]
  - MALIGNANT NEOPLASM PROGRESSION [None]
  - MARKEDLY REDUCED DIETARY INTAKE [None]
  - PANCREATIC CARCINOMA STAGE IV [None]
  - PERITONITIS [None]
  - PYREXIA [None]
